FAERS Safety Report 24029517 (Version 1)
Quarter: 2024Q2

REPORT INFORMATION
  Report Type: Spontaneous
  Country: CN (occurrence: CN)
  Receive Date: 20240628
  Receipt Date: 20240628
  Transmission Date: 20240716
  Serious: Yes (Hospitalization)
  Sender: FDA-Public Use
  Company Number: CN-ELI_LILLY_AND_COMPANY-CN202406013184

PATIENT
  Age: 74 Year
  Sex: Female
  Weight: 80 kg

DRUGS (7)
  1. TRULICITY [Suspect]
     Active Substance: DULAGLUTIDE
     Indication: Blood glucose decreased
     Dosage: UNK UNK, UNKNOWN
     Route: 065
  2. TRULICITY [Suspect]
     Active Substance: DULAGLUTIDE
     Dosage: 1.5 MG, WEEKLY (1/W)
     Route: 058
     Dates: start: 20240201, end: 20240531
  3. AMLODIPINE\VALSARTAN [Suspect]
     Active Substance: AMLODIPINE\VALSARTAN
     Indication: Blood pressure increased
     Dosage: 1 DOSAGE FORM, DAILY
     Route: 048
     Dates: start: 20240101, end: 20240531
  4. DAPAGLIFLOZIN [Suspect]
     Active Substance: DAPAGLIFLOZIN
     Indication: Blood glucose decreased
     Dosage: 1 DOSAGE FORM, DAILY
     Route: 048
     Dates: start: 20240101, end: 20240531
  5. ACARBOSE [Suspect]
     Active Substance: ACARBOSE
     Indication: Blood glucose decreased
     Dosage: 1 DOSAGE FORM, DAILY
     Route: 048
     Dates: start: 20240101, end: 20240531
  6. BISOPROLOL FUMARATE [Concomitant]
     Active Substance: BISOPROLOL FUMARATE
     Indication: Blood pressure increased
     Dosage: 2.5 MG, DAILY
     Route: 048
     Dates: start: 20240401, end: 20240531
  7. INSULIN NOS [Concomitant]
     Active Substance: INSULIN NOS
     Indication: Blood glucose increased
     Dosage: 4 DOSAGE FORM, UNKNOWN
     Route: 065

REACTIONS (2)
  - Biliary obstruction [Not Recovered/Not Resolved]
  - Hepatic steatosis [Unknown]
